FAERS Safety Report 10149549 (Version 3)
Quarter: 2014Q2

REPORT INFORMATION
  Report Type: Spontaneous
  Country: GB (occurrence: GB)
  Receive Date: 20140502
  Receipt Date: 20140526
  Transmission Date: 20141212
  Serious: Yes (Other)
  Sender: FDA-Public Use
  Company Number: PHFR2014GB002149

PATIENT
  Age: 37 Year
  Sex: Male

DRUGS (8)
  1. CLOZARIL [Suspect]
     Indication: SCHIZOPHRENIA, PARANOID TYPE
     Dosage: UNK
     Route: 048
     Dates: start: 20040922
  2. CLOZARIL [Suspect]
     Dosage: 325 MG, TWICE A DAY
     Route: 048
  3. CLOZARIL [Suspect]
     Dosage: 300 MG, TWICE A DAY
     Route: 048
  4. CLOZARIL [Suspect]
     Dosage: 275 MG, TWICE A DAY
     Route: 048
  5. CLOZARIL [Suspect]
     Dosage: 300 MG, TWICE A DAY
     Route: 048
  6. PAROXETINE [Concomitant]
     Dosage: 60 MG DAILY
     Route: 048
  7. HYOSCINE HYDROBROMIDE [Concomitant]
     Indication: SALIVARY HYPERSECRETION
     Dosage: UNK
  8. VALPROATE [Concomitant]
     Dosage: 500 MG, BID
     Route: 048

REACTIONS (4)
  - Obesity [Unknown]
  - Schizophrenia [Recovering/Resolving]
  - Convulsion [Recovered/Resolved]
  - Antipsychotic drug level increased [Recovering/Resolving]
